FAERS Safety Report 5821729-4 (Version None)
Quarter: 2008Q3

REPORT INFORMATION
  Report Type: 
  Country: None (occurrence: None)
  Receive Date: 20080721
  Receipt Date: 20080708
  Transmission Date: 20090109
  Serious: Yes (Hospitalization)
  Sender: FDA-Public Use
  Company Number: TCI2008A03546

PATIENT
  Age: 74 Year
  Sex: Male

DRUGS (4)
  1. LANSOPRAZOLE [Suspect]
     Indication: GASTRIC ULCER
     Dosage: PER ORAL
     Route: 048
     Dates: start: 20080104
  2. AMOXICILLIN TRIHYDRATE [Suspect]
     Indication: HELICOBACTER INFECTION
     Dosage: PER ORAL
     Route: 048
     Dates: start: 20080104
  3. CLARITHROMYCIN [Suspect]
     Indication: HELICOBACTER INFECTION
     Dosage: PER ORAL
     Route: 048
     Dates: start: 20080104
  4. GLYBURIDE [Suspect]
     Indication: TYPE 2 DIABETES MELLITUS
     Dosage: PER ORAL
     Route: 048

REACTIONS (4)
  - ALTERED STATE OF CONSCIOUSNESS [None]
  - DRUG INTERACTION [None]
  - HELICOBACTER INFECTION [None]
  - HYPOGLYCAEMIA [None]
